FAERS Safety Report 17401040 (Version 1)
Quarter: 2020Q1

REPORT INFORMATION
  Report Type: Spontaneous
  Country: MT (occurrence: MT)
  Receive Date: 20200211
  Receipt Date: 20200211
  Transmission Date: 20200409
  Serious: Yes (Death)
  Sender: FDA-Public Use
  Company Number: MT-ROCHE-2547906

PATIENT
  Age: 80 Year
  Sex: Male

DRUGS (1)
  1. XOLAIR [Suspect]
     Active Substance: OMALIZUMAB
     Indication: ASTHMA
     Dosage: UNK (BENEATH THE SKIN)
     Route: 058
     Dates: start: 2016, end: 201912

REACTIONS (2)
  - Chronic obstructive pulmonary disease [Fatal]
  - Respiratory failure [Fatal]

NARRATIVE: CASE EVENT DATE: 201912
